FAERS Safety Report 6317403-0 (Version None)
Quarter: 2009Q3

REPORT INFORMATION
  Report Type: 
  Country: None (occurrence: None)
  Receive Date: 20090820
  Receipt Date: 20090820
  Transmission Date: 20100115
  Serious: Yes (Disabling)
  Sender: FDA-Public Use
  Company Number: None

PATIENT
  Age: 39 Year
  Sex: Male
  Weight: 111.1313 kg

DRUGS (2)
  1. METHOTREXATE [Suspect]
     Indication: PSORIASIS
     Dosage: 2.5 MG 4 TIMES WEEK
     Dates: start: 20080608, end: 20080901
  2. METHOTREXATE [Suspect]
     Indication: PSORIATIC ARTHROPATHY
     Dosage: 2.5 MG 4 TIMES WEEK
     Dates: start: 20080608, end: 20080901

REACTIONS (1)
  - MYODESOPSIA [None]
